FAERS Safety Report 6553562-2 (Version None)
Quarter: 2010Q1

REPORT INFORMATION
  Report Type: 
  Country: None (occurrence: None)
  Receive Date: 20100122
  Receipt Date: 20100108
  Transmission Date: 20100710
  Serious: Yes (Hospitalization, Other)
  Sender: FDA-Public Use
  Company Number: 2009SP028418

PATIENT
  Age: 23 Year
  Sex: Female
  Weight: 189 kg

DRUGS (6)
  1. NUVARING [Suspect]
     Indication: CONTRACEPTION
     Dosage: 1 DF;QM
     Dates: start: 20080320, end: 20081123
  2. CARISOPRODOL [Concomitant]
  3. CLONAZEPAM [Concomitant]
  4. IBUPROFEN [Concomitant]
  5. HYDROCODONE [Concomitant]
  6. LORTAB [Concomitant]

REACTIONS (12)
  - AMENORRHOEA [None]
  - ARRHYTHMIA [None]
  - INJURY [None]
  - LUNG CONSOLIDATION [None]
  - ONYCHOCLASIS [None]
  - PLEURAL EFFUSION [None]
  - PNEUMONIA [None]
  - PULMONARY EMBOLISM [None]
  - PULMONARY INFARCTION [None]
  - RASH [None]
  - THROMBOSIS [None]
  - UPPER RESPIRATORY TRACT INFECTION [None]
